FAERS Safety Report 8885808 (Version 2)
Quarter: 2012Q4

REPORT INFORMATION
  Report Type: 
  Country: IT (occurrence: IT)
  Receive Date: 20121105
  Receipt Date: 20121217
  Transmission Date: 20130627
  Serious: Yes (Hospitalization)
  Sender: FDA-Public Use
  Company Number: IT-ELI_LILLY_AND_COMPANY-IT201210007285

PATIENT
  Age: 33 Year
  Sex: Female

DRUGS (4)
  1. XERISTAR [Suspect]
     Dosage: 224mg/total
     Route: 048
     Dates: start: 20090302, end: 20121010
  2. NOZINAN [Concomitant]
     Dosage: 750mg, total
     Route: 048
     Dates: start: 20090302, end: 20121010
  3. CARBOLITHIUM [Concomitant]
     Dosage: 3000mg, total
     Route: 048
  4. DELORAZEPAM [Concomitant]
     Indication: ANXIETY
     Dosage: 10mg, total
     Route: 048
     Dates: start: 20090302, end: 20121010

REACTIONS (2)
  - Intentional overdose [Recovered/Resolved]
  - Drug abuse [Unknown]
